FAERS Safety Report 8433750-0 (Version None)
Quarter: 2012Q2

REPORT INFORMATION
  Report Type: 
  Country: None (occurrence: None)
  Receive Date: 20120613
  Receipt Date: 20120602
  Transmission Date: 20120825
  Serious: No
  Sender: FDA-Public Use
  Company Number: US-BAYER-2012-058132

PATIENT
  Sex: Female

DRUGS (3)
  1. CIPROFLOXACIN HCL [Suspect]
     Indication: INFECTION
  2. LEVOFLOXACIN [Suspect]
     Indication: INFECTION
  3. AVELOX [Suspect]
     Indication: INFECTION

REACTIONS (1)
  - ADVERSE EVENT [None]
